FAERS Safety Report 20867940 (Version 1)
Quarter: 2022Q2

REPORT INFORMATION
  Report Type: Spontaneous
  Country: AU (occurrence: AU)
  Receive Date: 20220524
  Receipt Date: 20220524
  Transmission Date: 20220721
  Serious: Yes (Hospitalization, Other)
  Sender: FDA-Public Use
  Company Number: AU-NOVARTISPH-NVSC2022AU117853

PATIENT
  Age: 61 Year
  Sex: Female

DRUGS (9)
  1. SIPONIMOD [Suspect]
     Active Substance: SIPONIMOD
     Indication: Multiple sclerosis
     Dosage: UNK
     Route: 065
     Dates: start: 202012
  2. TELMISARTAN [Suspect]
     Active Substance: TELMISARTAN
     Indication: Hypertension
     Dosage: UNK
     Route: 065
  3. TELMISARTAN [Suspect]
     Active Substance: TELMISARTAN
     Indication: Dyslipidaemia
  4. ROSUVASTATIN [Suspect]
     Active Substance: ROSUVASTATIN
     Indication: Hypertension
     Dosage: UNK
     Route: 065
  5. ROSUVASTATIN [Suspect]
     Active Substance: ROSUVASTATIN
     Indication: Dyslipidaemia
  6. ENDEP [Suspect]
     Active Substance: AMITRIPTYLINE HYDROCHLORIDE
     Indication: Hypertension
     Dosage: UNK
     Route: 065
  7. ENDEP [Suspect]
     Active Substance: AMITRIPTYLINE HYDROCHLORIDE
     Indication: Dyslipidaemia
  8. LYRICA [Suspect]
     Active Substance: PREGABALIN
     Indication: Hypertension
     Dosage: UNK
     Route: 065
  9. LYRICA [Suspect]
     Active Substance: PREGABALIN
     Indication: Dyslipidaemia

REACTIONS (10)
  - Multiple sclerosis pseudo relapse [Unknown]
  - Feeling abnormal [Unknown]
  - Optic neuritis [Unknown]
  - Urinary retention [Unknown]
  - Hypoaesthesia [Unknown]
  - Gait disturbance [Unknown]
  - Constipation [Unknown]
  - Urinary hesitation [Unknown]
  - Amnesia [Unknown]
  - Muscular weakness [Recovering/Resolving]
